FAERS Safety Report 9587717 (Version 1)
Quarter: 2013Q4

REPORT INFORMATION
  Report Type: Spontaneous
  Country: BH (occurrence: BH)
  Receive Date: 20131003
  Receipt Date: 20131003
  Transmission Date: 20140711
  Serious: Yes (Other)
  Sender: FDA-Public Use
  Company Number: BH-ROCHE-1284488

PATIENT
  Sex: 0

DRUGS (3)
  1. BEVACIZUMAB [Suspect]
     Indication: BREAST CANCER METASTATIC
     Route: 065
     Dates: start: 20120115, end: 20120409
  2. TAXOL [Concomitant]
     Indication: BREAST CANCER METASTATIC
  3. GEMCITABINE [Concomitant]
     Indication: BREAST CANCER METASTATIC

REACTIONS (2)
  - Epistaxis [Recovered/Resolved]
  - Palpitations [Unknown]
